FAERS Safety Report 20063993 (Version 1)
Quarter: 2021Q4

REPORT INFORMATION
  Report Type: Spontaneous
  Country: US (occurrence: None)
  Receive Date: 20211112
  Receipt Date: 20211112
  Transmission Date: 20220303
  Serious: No
  Sender: FDA-Public Use
  Company Number: 2021A796527

PATIENT
  Age: 66 Year
  Sex: Female
  Weight: 101.2 kg

DRUGS (1)
  1. SAPHNELO [Suspect]
     Active Substance: ANIFROLUMAB-FNIA
     Indication: Central nervous system lupus
     Dosage: UNKNOWN
     Route: 042
     Dates: start: 20211028

REACTIONS (4)
  - Abnormal dreams [Unknown]
  - Feeling abnormal [Unknown]
  - Fatigue [Unknown]
  - Asthenia [Unknown]

NARRATIVE: CASE EVENT DATE: 20211001
